FAERS Safety Report 9286353 (Version 1)
Quarter: 2013Q2

REPORT INFORMATION
  Report Type: Spontaneous
  Country: US (occurrence: None)
  Receive Date: 20130503
  Receipt Date: 20130503
  Transmission Date: 20140414
  Serious: Yes (Other)
  Sender: FDA-Public Use
  Company Number: 2012-002463

PATIENT
  Age: 19 Year
  Sex: Female

DRUGS (1)
  1. LO LOESTRIN FE [Suspect]
     Route: 048

REACTIONS (4)
  - Abortion spontaneous [None]
  - Drug ineffective [None]
  - Maternal exposure timing unspecified [None]
  - Pregnancy on oral contraceptive [None]
